FAERS Safety Report 10608636 (Version 2)
Quarter: 2014Q4

REPORT INFORMATION
  Report Type: Spontaneous
  Country: US (occurrence: US)
  Receive Date: 20141125
  Receipt Date: 20141209
  Transmission Date: 20150529
  Serious: No
  Sender: FDA-Public Use
  Company Number: US-PFIZER INC-2014320920

PATIENT
  Age: 84 Year
  Sex: Male

DRUGS (6)
  1. PROTONIX [Concomitant]
     Active Substance: PANTOPRAZOLE SODIUM
     Dosage: 40 MG, UNK
  2. WELCHOL [Concomitant]
     Active Substance: COLESEVELAM HYDROCHLORIDE
     Dosage: UNK
  3. WARFARIN [Concomitant]
     Active Substance: WARFARIN
     Dosage: 5 MG, DAILY
  4. WARFARIN [Concomitant]
     Active Substance: WARFARIN
     Dosage: UNK UNK, DAILY
  5. ZETIA [Concomitant]
     Active Substance: EZETIMIBE
     Dosage: UNK
  6. TIKOSYN [Suspect]
     Active Substance: DOFETILIDE
     Indication: ATRIAL FIBRILLATION
     Dosage: 250 ?G, 2X/DAY

REACTIONS (4)
  - Myalgia [Not Recovered/Not Resolved]
  - Musculoskeletal pain [Not Recovered/Not Resolved]
  - Pain in extremity [Not Recovered/Not Resolved]
  - Arthralgia [Unknown]
